FAERS Safety Report 10071109 (Version 1)
Quarter: 2014Q2

REPORT INFORMATION
  Report Type: Report from Study
  Country: BR (occurrence: BR)
  Receive Date: 20140410
  Receipt Date: 20140410
  Transmission Date: 20141212
  Serious: Yes (Other)
  Sender: FDA-Public Use
  Company Number: PHHY2014BR043417

PATIENT
  Sex: Female
  Weight: 78 kg

DRUGS (4)
  1. DIOVAN AMLO FIX [Suspect]
     Indication: HYPERTENSION
     Dosage: 1 DF, IN THE MORNING (320 MG VALS AND 5 MG AMLO)
     Route: 048
  2. GLIFAGE [Concomitant]
     Indication: DIABETES MELLITUS
     Dosage: UNK UKN, UNK
  3. JANUVIA [Concomitant]
     Indication: DIABETES MELLITUS
     Dosage: UNK UKN, UNK
  4. LIPLESS [Concomitant]
     Indication: BLOOD TRIGLYCERIDES ABNORMAL
     Dosage: UNK UKN, UNK

REACTIONS (1)
  - Deafness unilateral [Not Recovered/Not Resolved]
